FAERS Safety Report 13072315 (Version 2)
Quarter: 2017Q1

REPORT INFORMATION
  Report Type: Report from Study
  Country: US (occurrence: US)
  Receive Date: 20161229
  Receipt Date: 20170113
  Transmission Date: 20170428
  Serious: Yes (Other)
  Sender: FDA-Public Use
  Company Number: US-TARO-2016TAR00984

PATIENT
  Age: 17 Year
  Sex: Female
  Weight: 67.76 kg

DRUGS (1)
  1. PLACEBO [Suspect]
     Active Substance: UNSPECIFIED INGREDIENT
     Indication: ACNE
     Dosage: PEA-SIZED AMOUNT, QD
     Route: 061
     Dates: start: 20160921, end: 20161108

REACTIONS (1)
  - Abortion missed [Recovered/Resolved]

NARRATIVE: CASE EVENT DATE: 20161212
